FAERS Safety Report 5714489-9 (Version None)
Quarter: 2008Q2

REPORT INFORMATION
  Report Type: 
  Country: None (occurrence: None)
  Receive Date: 20080423
  Receipt Date: 20080411
  Transmission Date: 20081010
  Serious: Yes (Other)
  Sender: FDA-Public Use
  Company Number: NSADSS2002037473

PATIENT
  Sex: Female
  Weight: 31.75 kg

DRUGS (5)
  1. CISAPRIDE [Suspect]
     Indication: GASTROINTESTINAL HYPOMOTILITY
     Route: 048
  2. CISAPRIDE [Suspect]
     Indication: CONSTIPATION
     Route: 048
  3. ZINC [Concomitant]
     Indication: NASAL CONGESTION
     Route: 065
  4. MOTRIN [Concomitant]
     Indication: SINUS HEADACHE
     Route: 065
  5. CHLOPHENIRAMINE [Concomitant]
     Indication: NASAL CONGESTION

REACTIONS (1)
  - ELECTROCARDIOGRAM QT PROLONGED [None]
